FAERS Safety Report 16112662 (Version 2)
Quarter: 2019Q2

REPORT INFORMATION
  Report Type: Report from Study
  Country: US (occurrence: US)
  Receive Date: 20190325
  Receipt Date: 20190530
  Transmission Date: 20190711
  Serious: Yes (Hospitalization, Other)
  Sender: FDA-Public Use
  Company Number: US-GILEAD-2019-0395175

PATIENT
  Age: 71 Year
  Sex: Male
  Weight: 93.6 kg

DRUGS (23)
  1. PRILOSEC [Concomitant]
     Active Substance: OMEPRAZOLE MAGNESIUM
     Dosage: 40MG BY MOUTH DAILY.
     Dates: start: 20190107
  2. TRINTELLIX [Concomitant]
     Active Substance: VORTIOXETINE HYDROBROMIDE
     Dosage: 20MG BY MOUTH EVERY DAY.
  3. XANAX [Concomitant]
     Active Substance: ALPRAZOLAM
     Dosage: NOT PROVIDED, TABLET BY MOUTH.
     Dates: start: 201703, end: 201806
  4. IDELALISIB [Suspect]
     Active Substance: IDELALISIB
     Indication: B-CELL LYMPHOMA
     Dosage: 150 MG, BID
     Route: 048
     Dates: start: 20160301, end: 2017
  5. WELLBUTRIN [Concomitant]
     Active Substance: BUPROPION HYDROCHLORIDE
  6. ONDANSETRON [Concomitant]
     Active Substance: ONDANSETRON
  7. BACTRIM [Concomitant]
     Active Substance: SULFAMETHOXAZOLE\TRIMETHOPRIM
  8. MULTIVITAMIN + MINERAL [Concomitant]
     Active Substance: MINERALS\VITAMINS
     Dosage: NOT PROVIDED, ONE TABLET BY MOUTH DAILY.
  9. COZAAR [Concomitant]
     Active Substance: LOSARTAN POTASSIUM
  10. PERCOCET [Concomitant]
     Active Substance: ACETAMINOPHEN\OXYCODONE HYDROCHLORIDE
  11. IDELALISIB [Suspect]
     Active Substance: IDELALISIB
     Dosage: 150 MG, QD
     Route: 048
     Dates: start: 20170328
  12. KEFLEX [Suspect]
     Active Substance: CEPHALEXIN
     Indication: MALIGNANT MELANOMA
     Dosage: 500 MG, BID
     Route: 048
     Dates: start: 20190515
  13. MELATONIN [Concomitant]
     Active Substance: MELATONIN
     Dosage: NOT PROVIDED, ONE TABLET BY MOUTH EVERY NIGHT AT BEDTIME.
  14. NAPROXEN. [Concomitant]
     Active Substance: NAPROXEN
  15. CALCIUM [Concomitant]
     Active Substance: CALCIUM
     Dosage: NOT PROVIDED, 1 TABLET BY MOUTH DAILY.
  16. REXULTI [Concomitant]
     Active Substance: BREXPIPRAZOLE
     Dosage: 1.5MG BY MOUTH DAILY.
  17. DOXYCYCLINE. [Concomitant]
     Active Substance: DOXYCYCLINE
  18. LITHIUM. [Suspect]
     Active Substance: LITHIUM
     Indication: PRODUCT USED FOR UNKNOWN INDICATION
     Route: 065
  19. VITAMIN D NOS [Concomitant]
     Active Substance: VITAMIN D NOS
     Dosage: NOT PROVIDED, TABLET BY MOUTH DAILY.
  20. BENADRYL 24 D [Concomitant]
     Active Substance: LORATADINE\PSEUDOEPHEDRINE SULFATE
     Dosage: 25MG, ONE TABLET BY MOUTH EVERY NIGHT AT BEDTIME.
  21. VALIUM [Concomitant]
     Active Substance: DIAZEPAM
     Dosage: 20MG BY MOUTH DAILY.
     Dates: start: 201806
  22. MUPIROCIN. [Concomitant]
     Active Substance: MUPIROCIN
  23. GAVISCON FORTE [Concomitant]
     Dosage: NOT PROVIDED, LIQUID BY MOUTH AS NEEDED OTC.

REACTIONS (21)
  - Oesophagitis [Unknown]
  - Contusion [Unknown]
  - Lumbar spinal stenosis [Not Recovered/Not Resolved]
  - Self esteem decreased [Not Recovered/Not Resolved]
  - Dysstasia [Not Recovered/Not Resolved]
  - Malignant melanoma [Unknown]
  - Spinal operation [Recovering/Resolving]
  - Inguinal hernia [Unknown]
  - Gastrooesophageal reflux disease [Recovered/Resolved]
  - Renal failure [Recovered/Resolved]
  - Depression [Not Recovered/Not Resolved]
  - Squamous cell carcinoma of head and neck [Unknown]
  - Malignant melanoma [Recovering/Resolving]
  - Anxiety [Not Recovered/Not Resolved]
  - Off label use [Not Recovered/Not Resolved]
  - Necrosis [Unknown]
  - Fatigue [Recovering/Resolving]
  - Dehydration [Recovered/Resolved]
  - Loss of consciousness [Recovered/Resolved]
  - Squamous cell carcinoma [Recovering/Resolving]
  - Diarrhoea [Recovered/Resolved]

NARRATIVE: CASE EVENT DATE: 2016
